FAERS Safety Report 15465310 (Version 2)
Quarter: 2018Q4

REPORT INFORMATION
  Report Type: Report from Study
  Country: US (occurrence: US)
  Receive Date: 20181004
  Receipt Date: 20181024
  Transmission Date: 20190204
  Serious: Yes (Other)
  Sender: FDA-Public Use
  Company Number: US-BAYER-2018-180821

PATIENT
  Age: 69 Year
  Sex: Male

DRUGS (1)
  1. STIVARGA [Suspect]
     Active Substance: REGORAFENIB
     Indication: COLON CANCER
     Dosage: DAILY DOSE 120 MG WITH LOW FAT MEAL FOR 21 DAYS AND 7 DAYS OFF
     Route: 048
     Dates: start: 20180919

REACTIONS (6)
  - Oedema peripheral [None]
  - Neuropathy peripheral [Not Recovered/Not Resolved]
  - Feeling abnormal [None]
  - Hypertension [None]
  - Off label use [None]
  - Diarrhoea [None]

NARRATIVE: CASE EVENT DATE: 2018
